FAERS Safety Report 6097092-3 (Version None)
Quarter: 2009Q1

REPORT INFORMATION
  Report Type: 
  Country: None (occurrence: None)
  Receive Date: 20090227
  Receipt Date: 20090220
  Transmission Date: 20090719
  Serious: Yes (Death)
  Sender: FDA-Public Use
  Company Number: GR-AVENTIS-200910890EU

PATIENT
  Sex: Male
  Weight: 150 kg

DRUGS (1)
  1. CLEXANE [Suspect]

REACTIONS (1)
  - PULMONARY EMBOLISM [None]
